FAERS Safety Report 5811363-4 (Version None)
Quarter: 2008Q3

REPORT INFORMATION
  Report Type: 
  Country: None (occurrence: None)
  Receive Date: 20080710
  Receipt Date: 20080625
  Transmission Date: 20090109
  Serious: Yes (Hospitalization)
  Sender: FDA-Public Use
  Company Number: 2008001513

PATIENT
  Age: 72 Year
  Sex: Male

DRUGS (1)
  1. TARCEVA [Suspect]
     Indication: LUNG NEOPLASM
     Dosage: (QD), ORAL
     Route: 048
     Dates: start: 20061001, end: 20080101

REACTIONS (3)
  - HYPOXIA [None]
  - INTERSTITIAL LUNG DISEASE [None]
  - OBSTRUCTIVE AIRWAYS DISORDER [None]
